FAERS Safety Report 5169147-9 (Version None)
Quarter: 2006Q4

REPORT INFORMATION
  Report Type: 
  Country: None (occurrence: None)
  Receive Date: 20061211
  Receipt Date: 20060215
  Transmission Date: 20070319
  Serious: No
  Sender: FDA-Public Use
  Company Number: US-BRISTOL-MYERS SQUIBB COMPANY-13285002

PATIENT
  Sex: Female

DRUGS (1)
  1. PROLIXIN [Suspect]
     Dosage: DURATION OF THERAPY:  MANY YEARS

REACTIONS (3)
  - MYALGIA [None]
  - PAIN IN EXTREMITY [None]
  - PAIN IN JAW [None]
